FAERS Safety Report 5017790-X (Version None)
Quarter: 2006Q2

REPORT INFORMATION
  Report Type: 
  Country: None (occurrence: None)
  Receive Date: 20060530
  Receipt Date: 20050303
  Transmission Date: 20061013
  Serious: Yes (Other)
  Sender: FDA-Public Use
  Company Number: 2005039099

PATIENT
  Age: 42 Year
  Sex: Male
  Weight: 113 kg

DRUGS (6)
  1. LYRICA [Suspect]
     Indication: SPINAL DISORDER
     Dosage: 150 MG (75 MG, 2 IN 1 D), ORAL
     Route: 048
     Dates: start: 20050131, end: 20050221
  2. METOPROLOL SUCCINATE [Concomitant]
  3. TOLPERIDONE HYDROCHLORIDE (TOLPERIDONE HYDROCHLORIDE) [Concomitant]
  4. DIHYDROCODEINE BITARTRATE (DIHYDROCODEINE BITARTATE) [Concomitant]
  5. DIPYRONE TAB [Concomitant]
  6. TRAMADOL HCL [Concomitant]

REACTIONS (3)
  - BLOOD PRESSURE INCREASED [None]
  - DYSPNOEA [None]
  - HEART RATE INCREASED [None]
